FAERS Safety Report 7256589 (Version 2)
Quarter: 2012Q4

REPORT INFORMATION
  Report Type: Report from Study
  Country: CH (occurrence: CH)
  Receive Date: 20100126
  Receipt Date: 20121113
  Transmission Date: 20130627
  Serious: Yes (Hospitalization)
  Sender: FDA-Public Use
  Company Number: CH-CELGENEUS-151-50794-09020119

PATIENT
  Age: 80 Year
  Sex: Female

DRUGS (2)
  1. VIDAZA [Suspect]
     Indication: ACUTE MYELOID LEUKAEMIA
     Dosage: 169 Milligram
     Route: 058
     Dates: start: 20081007
  2. VIDAZA [Suspect]
     Dosage: 169 Milligram
     Route: 058
     Dates: start: 20090127, end: 20090128

REACTIONS (2)
  - Fall [Recovered/Resolved with Sequelae]
  - Subdural haematoma [Recovered/Resolved with Sequelae]
